APPROVED DRUG PRODUCT: LEVETIRACETAM
Active Ingredient: LEVETIRACETAM
Strength: 500MG/5ML (100MG/ML)
Dosage Form/Route: INJECTABLE;INTRAVENOUS
Application: A090813 | Product #001
Applicant: FRESENIUS KABI USA LLC
Approved: May 26, 2010 | RLD: No | RS: No | Type: DISCN